FAERS Safety Report 5384231-2 (Version None)
Quarter: 2007Q3

REPORT INFORMATION
  Report Type: 
  Country: None (occurrence: None)
  Receive Date: 20070709
  Receipt Date: 20060606
  Transmission Date: 20080115
  Serious: Yes (Other)
  Sender: FDA-Public Use
  Company Number: US-2006-014149

PATIENT
  Age: 57 Year
  Sex: Female
  Weight: 77.6 kg

DRUGS (1)
  1. ULTRAVIST 300 [Suspect]
     Indication: SCAN BRAIN
     Dosage: 100 ML, 1 DOSE,  INTRAVENOUS
     Route: 042
     Dates: start: 20060403, end: 20060403

REACTIONS (4)
  - EYE SWELLING [None]
  - PRURITUS [None]
  - SWELLING FACE [None]
  - URTICARIA [None]
